FAERS Safety Report 8325123-6 (Version None)
Quarter: 2012Q2

REPORT INFORMATION
  Report Type: 
  Country: None (occurrence: None)
  Receive Date: 20120501
  Receipt Date: 20120227
  Transmission Date: 20120825
  Serious: No
  Sender: FDA-Public Use
  Company Number: US-ABBOTT-12P-163-0910079-00

PATIENT
  Sex: Male

DRUGS (4)
  1. VICODIN [Concomitant]
     Indication: PAIN
  2. CREON [Suspect]
     Indication: PANCREATIC INSUFFICIENCY
  3. CREON [Suspect]
     Indication: PANCREATITIS CHRONIC
     Dosage: 3X24000 LIPASE UNITS PER MEAL AND ONE PER SNACK
     Dates: start: 20120223, end: 20120226
  4. PRILOSEC [Concomitant]
     Indication: PRODUCT USED FOR UNKNOWN INDICATION

REACTIONS (1)
  - ABDOMINAL PAIN UPPER [None]
